FAERS Safety Report 20598235 (Version 1)
Quarter: 2022Q1

REPORT INFORMATION
  Report Type: Report from Study
  Country: NL (occurrence: None)
  Receive Date: 20220315
  Receipt Date: 20220315
  Transmission Date: 20220423
  Serious: Yes (Hospitalization)
  Sender: FDA-Public Use
  Company Number: NL-ROCHE-2584876

PATIENT
  Age: 63 Year
  Sex: Female

DRUGS (6)
  1. BEVACIZUMAB [Suspect]
     Active Substance: BEVACIZUMAB
     Indication: Colorectal cancer
     Dosage: DATE OF FIRST CYCLE: 03/JAN/2011?DATE OF LAST CYCLE: 24/AUG/2011?DAILY DOSE:
     Route: 042
  2. BEVACIZUMAB [Suspect]
     Active Substance: BEVACIZUMAB
     Dosage: DATE OF FIRST CYCLE:28/MAR/2011?DATE OF LAST CYCLE: 19/SEP/2011?DAILY DOSE:550 MG
     Route: 042
  3. CAPECITABINE [Suspect]
     Active Substance: CAPECITABINE
     Indication: Colorectal cancer
     Dosage: DATE OF FIRST CYCLE: 01/NOV/2011?DATE OF LAST CYCLE: 24/AUG/2011
     Route: 048
  4. CAPECITABINE [Suspect]
     Active Substance: CAPECITABINE
     Dosage: DATE OF FIRST CYCLE: 28/MAR/2011?DATE OF LAST CYCLE: 19/SEP/2011?DAILY DOSE:1150 MG
     Route: 048
  5. OXALIPLATIN [Concomitant]
     Active Substance: OXALIPLATIN
     Indication: Colorectal cancer
     Dates: start: 20101103, end: 20110214
  6. OMEPRAZOLE [Concomitant]
     Active Substance: OMEPRAZOLE

REACTIONS (1)
  - Stoma site haemorrhage [Recovered/Resolved]

NARRATIVE: CASE EVENT DATE: 20110830
